FAERS Safety Report 12210941 (Version 1)
Quarter: 2016Q1

REPORT INFORMATION
  Report Type: Spontaneous
  Country: US (occurrence: None)
  Receive Date: 20160324
  Receipt Date: 20160324
  Transmission Date: 20160526
  Serious: No
  Sender: FDA-Public Use
  Company Number: None

PATIENT
  Age: 60 Year
  Sex: Female

DRUGS (1)
  1. ENBREL [Suspect]
     Active Substance: ETANERCEPT
     Indication: RHEUMATOID ARTHRITIS
     Route: 058
     Dates: start: 20151101

REACTIONS (5)
  - Weight decreased [None]
  - Cough [None]
  - Therapy cessation [None]
  - Decreased appetite [None]
  - Dyspnoea [None]

NARRATIVE: CASE EVENT DATE: 20160321
